FAERS Safety Report 6530718-6 (Version None)
Quarter: 2010Q1

REPORT INFORMATION
  Report Type: 
  Country: None (occurrence: None)
  Receive Date: 20100108
  Receipt Date: 20090105
  Transmission Date: 20100710
  Serious: No
  Sender: FDA-Public Use
  Company Number: A0760197A

PATIENT
  Age: 70 Year
  Sex: Male
  Weight: 103.2 kg

DRUGS (11)
  1. LOVAZA [Suspect]
     Dosage: 4G PER DAY
     Route: 048
     Dates: start: 20080718, end: 20081212
  2. STATINS [Concomitant]
  3. ZETIA [Concomitant]
     Dosage: 10MG PER DAY
  4. ATENOLOL [Concomitant]
     Dosage: 100MG PER DAY
     Route: 048
  5. ASPIRIN [Concomitant]
     Dosage: 81MG PER DAY
     Route: 048
  6. ZOLOFT [Concomitant]
     Dosage: 25MG PER DAY
     Route: 048
  7. PLAVIX [Concomitant]
     Dosage: 75MG PER DAY
     Route: 048
  8. NITROGLYCERIN [Concomitant]
  9. TRAMADOL HCL [Concomitant]
     Dosage: 50MG TWICE PER DAY
     Route: 048
  10. CRESTOR [Concomitant]
     Dosage: 5MG PER DAY
     Route: 048
  11. LISINOPRIL AND HYDROCHLOROTHIAZIDE [Concomitant]
     Route: 048

REACTIONS (2)
  - BLOOD CHOLESTEROL INCREASED [None]
  - BLOOD TRIGLYCERIDES INCREASED [None]
